FAERS Safety Report 7854274-5 (Version None)
Quarter: 2011Q4

REPORT INFORMATION
  Report Type: 
  Country: None (occurrence: None)
  Receive Date: 20111026
  Receipt Date: 20111015
  Transmission Date: 20120403
  Serious: Yes (Other)
  Sender: FDA-Public Use
  Company Number: ES-ELI_LILLY_AND_COMPANY-ES201110003820

PATIENT
  Sex: Female
  Weight: 70 kg

DRUGS (6)
  1. ALIMTA [Suspect]
     Indication: LUNG NEOPLASM MALIGNANT
     Dosage: UNK
     Dates: start: 20110919
  2. FORTECORTIN [Concomitant]
     Indication: ADJUVANT THERAPY
     Dosage: 2 MG, PER 12 HRS
     Dates: start: 20110920
  3. ZOFRAN [Concomitant]
     Indication: ANTIEMETIC SUPPORTIVE CARE
     Dosage: 4 MG, PER 8 HRS
     Dates: start: 20110920
  4. METAMIZOL [Concomitant]
     Indication: PAIN
     Dosage: 575 MG, PRN
     Dates: start: 20110816
  5. OMEPRAZOLE [Concomitant]
     Indication: GASTRITIS
     Dosage: 40 MG, QD
     Dates: start: 20110812
  6. TRAMADOL HCL [Concomitant]
     Indication: PAIN
     Dosage: 50 MG, PER 8 HRS
     Dates: start: 20110816

REACTIONS (2)
  - GENERALISED ERYTHEMA [None]
  - HAEMATEMESIS [None]
